FAERS Safety Report 15420389 (Version 5)
Quarter: 2018Q4

REPORT INFORMATION
  Report Type: Spontaneous
  Country: US (occurrence: US)
  Receive Date: 20180924
  Receipt Date: 20181121
  Transmission Date: 20190204
  Serious: Yes (Other)
  Sender: FDA-Public Use
  Company Number: US-IMPAX LABORATORIES, INC-2018-IPXL-03054

PATIENT
  Age: 69 Year
  Sex: Female
  Weight: 50 kg

DRUGS (7)
  1. RYTARY [Suspect]
     Active Substance: CARBIDOPA\LEVODOPA
     Dosage: 23.75/95 MG, 6 CAP A DAY (1 IN AM, 1 AN HOUR LATER, 1 AT 3 PM, 1 AT 4 PM, 1 AT 9 PM, AND 1 AT 10 PM)
     Route: 048
     Dates: start: 2018
  2. RYTARY [Suspect]
     Active Substance: CARBIDOPA\LEVODOPA
     Indication: PARKINSON^S DISEASE
     Dosage: 23.75/95 MG, ONE CAPSULE, THREE TIMES A DAY (TAKING THE PRODUCT DIFFERENTLY THAN PRESCRIBED)
     Route: 048
     Dates: start: 2018, end: 2018
  3. RYTARY [Suspect]
     Active Substance: CARBIDOPA\LEVODOPA
     Dosage: 23.75/95 MG, TWO CAPSULES IN MORNING, TWO CAPSULES IN AFTERNOON, AND ONE AN HOUR BEFORE BEDTIME
     Route: 048
     Dates: start: 201806, end: 2018
  4. RYTARY [Suspect]
     Active Substance: CARBIDOPA\LEVODOPA
     Dosage: 23.75/95 MG, SIX CAPSULES A DAY (2, 2, 1 AND 1)
     Route: 048
     Dates: start: 2018, end: 2018
  5. BENAZEPRIL [Concomitant]
     Active Substance: BENAZEPRIL HYDROCHLORIDE
     Indication: HYPERTENSION
     Dosage: UNK
     Route: 048
  6. CARBIDOPA-LEVODOPA ER [Suspect]
     Active Substance: CARBIDOPA\LEVODOPA
     Indication: PARKINSON^S DISEASE
     Dosage: UNK
     Route: 065
  7. RYTARY [Suspect]
     Active Substance: CARBIDOPA\LEVODOPA
     Dosage: 23.75/95 MG, 6 CAPSULES A DAY (1+1+2+1+1) (AT NIGHT TAKE ONE CAPSULE AT 9:30-10PM AND 2ND AT 11PM)
     Route: 048
     Dates: start: 2018, end: 2018

REACTIONS (27)
  - Somnolence [Not Recovered/Not Resolved]
  - Middle insomnia [Not Recovered/Not Resolved]
  - Dizziness postural [Unknown]
  - Drug effect delayed [Not Recovered/Not Resolved]
  - Feeling cold [Unknown]
  - Hot flush [Not Recovered/Not Resolved]
  - Muscle spasms [Not Recovered/Not Resolved]
  - Tremor [Not Recovered/Not Resolved]
  - Gait disturbance [Not Recovered/Not Resolved]
  - Nausea [Not Recovered/Not Resolved]
  - Restless legs syndrome [Not Recovered/Not Resolved]
  - Asthenia [Not Recovered/Not Resolved]
  - Therapeutic response shortened [Not Recovered/Not Resolved]
  - Treatment noncompliance [Unknown]
  - On and off phenomenon [Not Recovered/Not Resolved]
  - Paraesthesia [Not Recovered/Not Resolved]
  - Feeling abnormal [Not Recovered/Not Resolved]
  - Peripheral swelling [Not Recovered/Not Resolved]
  - Abdominal discomfort [Unknown]
  - Drug effect variable [Not Recovered/Not Resolved]
  - Skin discolouration [Not Recovered/Not Resolved]
  - Joint swelling [Not Recovered/Not Resolved]
  - Respiratory rate decreased [Unknown]
  - Dyskinesia [Not Recovered/Not Resolved]
  - Hypotension [Not Recovered/Not Resolved]
  - Gastrooesophageal reflux disease [Not Recovered/Not Resolved]
  - Joint stiffness [Not Recovered/Not Resolved]

NARRATIVE: CASE EVENT DATE: 2018
